FAERS Safety Report 12224434 (Version 1)
Quarter: 2016Q1

REPORT INFORMATION
  Report Type: Report from Study
  Country: US (occurrence: US)
  Receive Date: 20160331
  Receipt Date: 20160331
  Transmission Date: 20160526
  Serious: Yes (Other)
  Sender: FDA-Public Use
  Company Number: US-AMGEN-USASL2016038869

PATIENT
  Age: 75 Year
  Sex: Female

DRUGS (2)
  1. REMICADE [Concomitant]
     Active Substance: INFLIXIMAB
     Dosage: UNK
  2. ENBREL [Suspect]
     Active Substance: ETANERCEPT
     Indication: PSORIATIC ARTHROPATHY
     Dosage: 50 MG, QWK
     Route: 065
     Dates: start: 2009

REACTIONS (5)
  - Fall [Unknown]
  - Lower limb fracture [Unknown]
  - Disability [Unknown]
  - Wheelchair user [Unknown]
  - Arthropathy [Unknown]

NARRATIVE: CASE EVENT DATE: 201506
